FAERS Safety Report 13273393 (Version 9)
Quarter: 2019Q3

REPORT INFORMATION
  Report Type: Report from Study
  Country: JP (occurrence: JP)
  Receive Date: 20170227
  Receipt Date: 20190920
  Transmission Date: 20191004
  Serious: Yes (Hospitalization, Disabling, Other)
  Sender: FDA-Public Use
  Company Number: PHJP2017JP006284

PATIENT
  Age: 7 Month
  Sex: Male

DRUGS (51)
  1. MEIACT [Suspect]
     Active Substance: CEFDITOREN PIVOXIL
     Indication: C-REACTIVE PROTEIN INCREASED
     Dosage: 0.8 G, UNK
     Route: 048
     Dates: start: 20180703, end: 20180709
  2. LAC-B [Suspect]
     Active Substance: BIFIDOBACTERIUM SPP.
     Indication: PROPHYLAXIS AGAINST DIARRHOEA
     Dosage: 0.8 G, UNK
     Route: 048
     Dates: start: 20170223, end: 20170304
  3. PHENOBAL [Concomitant]
     Active Substance: PHENOBARBITAL
     Dosage: 45 MG, UNK
     Route: 048
     Dates: start: 20180731, end: 20180731
  4. BAKTAR [Concomitant]
     Active Substance: SULFAMETHOXAZOLE\TRIMETHOPRIM
     Indication: PROPHYLAXIS
     Dosage: 0.5 G, UNK
     Route: 048
     Dates: start: 20170314, end: 20180702
  5. MIYA-BM [Concomitant]
     Active Substance: CLOSTRIDIUM BUTYRICUM SPORES STRAIN M-55
     Indication: C-REACTIVE PROTEIN INCREASED
  6. ILARIS [Suspect]
     Active Substance: CANAKINUMAB
     Dosage: 46.5 MG, UNK
     Route: 058
     Dates: start: 20170530
  7. MEIACT [Suspect]
     Active Substance: CEFDITOREN PIVOXIL
     Indication: PROPHYLAXIS
     Dosage: 0.8 G, UNK
     Route: 048
     Dates: start: 20180605, end: 20180609
  8. CEFDITOREN PIVOXIL. [Suspect]
     Active Substance: CEFDITOREN PIVOXIL
     Indication: PNEUMONIA ASPIRATION
     Dosage: 0.8 G, UNK
     Route: 048
     Dates: start: 20180709, end: 20180711
  9. GLYCEROL [Suspect]
     Active Substance: GLYCERIN
     Indication: CONSTIPATION
     Dosage: 15 ML, UNK
     Route: 054
     Dates: start: 20170822
  10. SYNAGIS [Concomitant]
     Active Substance: PALIVIZUMAB
     Indication: PROPHYLAXIS
     Dosage: 120 MG, 4W
     Route: 065
     Dates: start: 20161213, end: 20180403
  11. SYNAGIS [Concomitant]
     Active Substance: PALIVIZUMAB
     Dosage: 130 MG, UNK
     Route: 065
     Dates: start: 20180605, end: 20180605
  12. E KEPPRA [Concomitant]
     Active Substance: LEVETIRACETAM
     Dosage: 200 MG, UNK
     Route: 048
     Dates: start: 20180731
  13. ENSURE [Concomitant]
     Active Substance: AMINO ACIDS\DEXTROSE\ELECTROLYTES NOS\SOYBEAN OIL\VITAMINS
     Indication: CHRONIC INFANTILE NEUROLOGICAL CUTANEOUS AND ARTICULAR SYNDROME
     Dosage: 1 DF, UNK
     Route: 048
     Dates: start: 20180508, end: 20180826
  14. ILARIS [Suspect]
     Active Substance: CANAKINUMAB
     Indication: CHRONIC INFANTILE NEUROLOGICAL CUTANEOUS AND ARTICULAR SYNDROME
     Dosage: 15 MG, UNK
     Route: 058
     Dates: start: 20160823, end: 20160823
  15. ILARIS [Suspect]
     Active Substance: CANAKINUMAB
     Dosage: 16.5 MG, UNK
     Route: 058
     Dates: start: 20161018, end: 20161018
  16. ILARIS [Suspect]
     Active Substance: CANAKINUMAB
     Dosage: 16.5 MG, UNK
     Route: 058
     Dates: start: 20161213, end: 20161213
  17. ILARIS [Suspect]
     Active Substance: CANAKINUMAB
     Dosage: 31.5 MG, UNK
     Route: 058
     Dates: start: 20170404
  18. INCREMIN [Concomitant]
     Active Substance: FERRIC PYROPHOSPHATE
     Indication: CHRONIC INFANTILE NEUROLOGICAL CUTANEOUS AND ARTICULAR SYNDROME
     Dosage: 6 ML, UNK
     Route: 048
     Dates: start: 20170110, end: 20170918
  19. BAKTAR [Concomitant]
     Active Substance: SULFAMETHOXAZOLE\TRIMETHOPRIM
     Dosage: 0.2 G, UNK
     Route: 048
     Dates: start: 20180703
  20. CEFOTAXIME [Concomitant]
     Active Substance: CEFOTAXIME SODIUM
     Indication: PROPHYLAXIS
     Dosage: 900 MG, UNK
     Route: 065
     Dates: start: 20170222, end: 20170224
  21. ILARIS [Suspect]
     Active Substance: CANAKINUMAB
     Dosage: 16.5 MG, UNK
     Route: 058
     Dates: start: 20170207
  22. ILARIS [Suspect]
     Active Substance: CANAKINUMAB
     Dosage: 67 UNK, UNK
     Route: 058
     Dates: start: 20180703
  23. INFLUENZA VACCINE [Concomitant]
     Active Substance: INFLUENZA VIRUS VACCINE
     Indication: PROPHYLAXIS
     Dosage: 0.25 ML, UNK
     Route: 065
     Dates: start: 20161115, end: 20161115
  24. ILARIS [Suspect]
     Active Substance: CANAKINUMAB
     Dosage: 63 MG, UNK
     Route: 058
     Dates: start: 20171114
  25. ILARIS [Suspect]
     Active Substance: CANAKINUMAB
     Dosage: 63 MG, UNK
     Route: 058
     Dates: start: 20180109
  26. ILARIS [Suspect]
     Active Substance: CANAKINUMAB
     Dosage: 67 MG, UNK
     Route: 058
     Dates: start: 20180508
  27. PHENOBAL [Concomitant]
     Active Substance: PHENOBARBITAL
     Dosage: 45 MG, UNK
     Route: 048
     Dates: start: 20170530, end: 20180702
  28. INFLUENZA VACCINE [Concomitant]
     Active Substance: INFLUENZA VIRUS VACCINE
     Dosage: 0.25 ML, UNK
     Route: 065
     Dates: start: 20170110, end: 20170110
  29. E KEPPRA [Concomitant]
     Active Substance: LEVETIRACETAM
     Dosage: 100 MG, UNK
     Route: 048
     Dates: start: 20180320, end: 20180416
  30. E KEPPRA [Concomitant]
     Active Substance: LEVETIRACETAM
     Dosage: 150 MG, UNK
     Route: 048
     Dates: start: 20180417, end: 20180730
  31. MIYA-BM [Concomitant]
     Active Substance: CLOSTRIDIUM BUTYRICUM SPORES STRAIN M-55
     Indication: CONSTIPATION
     Dosage: 0.8 G, UNK
     Route: 048
     Dates: start: 20180403, end: 20180417
  32. MIYA-BM [Concomitant]
     Active Substance: CLOSTRIDIUM BUTYRICUM SPORES STRAIN M-55
     Indication: PROPHYLAXIS
     Dosage: 0.8 G, UNK
     Route: 048
     Dates: start: 20180620, end: 20180624
  33. ILARIS [Suspect]
     Active Substance: CANAKINUMAB
     Dosage: 63 UNK, UNK
     Route: 058
     Dates: start: 20180306
  34. ILARIS [Suspect]
     Active Substance: CANAKINUMAB
     Dosage: 64 MG, UNK
     Route: 058
     Dates: start: 20180731
  35. CEFDITOREN PIVOXIL. [Suspect]
     Active Substance: CEFDITOREN PIVOXIL
     Indication: PYREXIA
     Dosage: 0.8 G, UNK
     Route: 048
     Dates: start: 20180620, end: 20180624
  36. LAC-B [Suspect]
     Active Substance: BIFIDOBACTERIUM SPP.
     Indication: CONSTIPATION
     Dosage: 0.7 G, UNK
     Route: 048
     Dates: start: 20170822, end: 20170829
  37. PHENOBAL [Concomitant]
     Active Substance: PHENOBARBITAL
     Dosage: 50 MG, UNK
     Route: 048
     Dates: start: 20180703, end: 20180730
  38. HIRUDOID [Concomitant]
     Active Substance: GLYCOSAMINOGLYCANS
     Indication: PRODUCT USED FOR UNKNOWN INDICATION
     Dosage: UNK
     Route: 061
     Dates: start: 20180109
  39. CEFOTAXIME [Concomitant]
     Active Substance: CEFOTAXIME SODIUM
     Indication: PNEUMONIA
     Dosage: 300 MG, UNK
     Route: 065
     Dates: start: 20180621, end: 20180621
  40. CEFOTAXIME [Concomitant]
     Active Substance: CEFOTAXIME SODIUM
     Indication: PNEUMONIA ASPIRATION
     Dosage: 1200 MG, UNK
     Route: 065
     Dates: start: 20180704, end: 20180709
  41. E KEPPRA [Concomitant]
     Active Substance: LEVETIRACETAM
     Indication: CHRONIC INFANTILE NEUROLOGICAL CUTANEOUS AND ARTICULAR SYNDROME
     Dosage: 50 MG, UNK
     Route: 048
     Dates: start: 20180313, end: 20180319
  42. MIYA-BM [Concomitant]
     Active Substance: CLOSTRIDIUM BUTYRICUM SPORES STRAIN M-55
     Indication: PYREXIA
     Dosage: 0.8 G, UNK
     Route: 048
     Dates: start: 20180703, end: 20180709
  43. ILARIS [Suspect]
     Active Substance: CANAKINUMAB
     Dosage: 63 MG, UNK
     Route: 058
     Dates: start: 20170919
  44. PHENOBAL [Concomitant]
     Active Substance: PHENOBARBITAL
     Indication: CHRONIC INFANTILE NEUROLOGICAL CUTANEOUS AND ARTICULAR SYNDROME
     Dosage: 40 MG, UNK
     Route: 048
     Dates: start: 20160424, end: 20170530
  45. PHENOBAL [Concomitant]
     Active Substance: PHENOBARBITAL
     Dosage: UNK
     Route: 048
  46. SYNAGIS [Concomitant]
     Active Substance: PALIVIZUMAB
     Dosage: 130 MG, UNK
     Route: 065
     Dates: start: 20180508, end: 20180508
  47. MIYA-BM [Concomitant]
     Active Substance: CLOSTRIDIUM BUTYRICUM SPORES STRAIN M-55
     Indication: DECREASED APPETITE
     Dosage: 0.8 G, UNK
     Route: 048
     Dates: start: 20180605, end: 20180609
  48. DIAPP [Concomitant]
     Active Substance: DIAZEPAM
     Indication: SEIZURE
     Dosage: 1 DF, PRN
     Route: 054
     Dates: start: 20180822
  49. DIAPP [Concomitant]
     Active Substance: DIAZEPAM
     Indication: CHRONIC INFANTILE NEUROLOGICAL CUTANEOUS AND ARTICULAR SYNDROME
  50. ILARIS [Suspect]
     Active Substance: CANAKINUMAB
     Dosage: 63 MG, UNK
     Route: 058
     Dates: start: 20170725
  51. INCREMIN [Concomitant]
     Active Substance: FERRIC PYROPHOSPHATE
     Indication: ANAEMIA

REACTIONS (38)
  - Asthenia [Unknown]
  - Head titubation [Unknown]
  - Hyperthermia [Unknown]
  - Subdural hygroma [Unknown]
  - Cryopyrin associated periodic syndrome [Recovered/Resolved]
  - Cough [Recovering/Resolving]
  - Rhinorrhoea [Recovering/Resolving]
  - Carnitine deficiency [Recovering/Resolving]
  - Tardive dyskinesia [Unknown]
  - Papilloedema [Recovered/Resolved with Sequelae]
  - Coating in mouth [Unknown]
  - Bronchitis [Recovering/Resolving]
  - Asterixis [Recovering/Resolving]
  - Condition aggravated [Recovered/Resolved]
  - Constipation [Recovering/Resolving]
  - Laryngitis [Unknown]
  - Restlessness [Unknown]
  - Mastication disorder [Unknown]
  - Gastroenteritis adenovirus [Unknown]
  - Aspiration [Not Recovered/Not Resolved]
  - Road traffic accident [Recovered/Resolved]
  - Product use issue [Not Recovered/Not Resolved]
  - Pyrexia [Recovering/Resolving]
  - Cerebral atrophy [Unknown]
  - Aspiration [Recovered/Resolved]
  - White blood cell count increased [Unknown]
  - Seizure [Unknown]
  - Gait disturbance [Unknown]
  - Pneumonia aspiration [Unknown]
  - Vomiting [Unknown]
  - Nasopharyngitis [Recovered/Resolved]
  - Decreased appetite [Recovering/Resolving]
  - Dyskinesia [Unknown]
  - Pneumonia aspiration [Recovered/Resolved]
  - White blood cell count increased [Recovered/Resolved]
  - Oral candidiasis [Recovering/Resolving]
  - Benign enlargement of the subarachnoid spaces [Unknown]
  - C-reactive protein increased [Not Recovered/Not Resolved]

NARRATIVE: CASE EVENT DATE: 20160823
